FAERS Safety Report 6765154-0 (Version None)
Quarter: 2010Q2

REPORT INFORMATION
  Report Type: 
  Country: None (occurrence: None)
  Receive Date: 20100610
  Receipt Date: 20100610
  Transmission Date: 20101027
  Serious: No
  Sender: FDA-Public Use
  Company Number: None

PATIENT
  Age: 54 Year
  Sex: Female
  Weight: 52.1637 kg

DRUGS (1)
  1. ACTONEL [Suspect]
     Indication: OSTEOPENIA
     Dosage: 150 MG Q MONTH PO, ONE DOSE
     Route: 048
     Dates: start: 20100514

REACTIONS (4)
  - ARTHRALGIA [None]
  - HEADACHE [None]
  - INSOMNIA [None]
  - MYALGIA [None]
